FAERS Safety Report 24245171 (Version 3)
Quarter: 2025Q1

REPORT INFORMATION
  Report Type: Report from Study
  Country: US (occurrence: US)
  Receive Date: 20240823
  Receipt Date: 20250106
  Transmission Date: 20250409
  Serious: No
  Sender: SUNOVION
  Company Number: US-SUMITOMO PHARMA SWITZERLAND GMBH-2024SPA000617

PATIENT

DRUGS (3)
  1. ORGOVYX [Suspect]
     Active Substance: RELUGOLIX
     Indication: Prostate cancer
     Dosage: 360 MG, SINGLE
     Route: 048
     Dates: start: 202404, end: 202404
  2. ORGOVYX [Suspect]
     Active Substance: RELUGOLIX
     Dosage: 120 MG, QD
     Route: 048
     Dates: start: 202404
  3. LISINOPRIL [Suspect]
     Active Substance: LISINOPRIL
     Route: 065

REACTIONS (6)
  - Hypotension [Unknown]
  - Muscle tightness [Unknown]
  - Muscle spasms [Unknown]
  - Diarrhoea [Unknown]
  - Fatigue [Unknown]
  - Hot flush [Unknown]
